FAERS Safety Report 12084695 (Version 2)
Quarter: 2016Q1

REPORT INFORMATION
  Report Type: Report from Study
  Country: CA (occurrence: CA)
  Receive Date: 20160217
  Receipt Date: 20160314
  Transmission Date: 20160526
  Serious: No
  Sender: FDA-Public Use
  Company Number: CA-B.I. PHARMACEUTICALS,INC./RIDGEFIELD-2016-BI-08573CN

PATIENT
  Age: 74 Year
  Sex: Male

DRUGS (3)
  1. TECTA [Concomitant]
     Active Substance: PANTOPRAZOLE MAGNESIUM
     Indication: GASTROOESOPHAGEAL REFLUX DISEASE
     Route: 065
     Dates: start: 201501
  2. OFEV [Suspect]
     Active Substance: NINTEDANIB
     Indication: IDIOPATHIC PULMONARY FIBROSIS
     Dosage: 300 MG
     Route: 048
     Dates: start: 20151218, end: 20160129
  3. ASA [Concomitant]
     Active Substance: ASPIRIN
     Indication: PRODUCT USED FOR UNKNOWN INDICATION
     Route: 065

REACTIONS (2)
  - Hepatic enzyme increased [Recovered/Resolved]
  - Hepatitis [Recovered/Resolved]

NARRATIVE: CASE EVENT DATE: 20160129
